FAERS Safety Report 9465532 (Version 1)
Quarter: 2013Q3

REPORT INFORMATION
  Report Type: Spontaneous
  Country: US (occurrence: US)
  Receive Date: 20130820
  Receipt Date: 20130820
  Transmission Date: 20140515
  Serious: Yes (Hospitalization, Other)
  Sender: FDA-Public Use
  Company Number: US-ASTRAZENECA-2013SE63110

PATIENT
  Age: 72 Year
  Sex: Male
  Weight: 111.1 kg

DRUGS (9)
  1. OMEPRAZOLE [Suspect]
     Indication: GASTROOESOPHAGEAL REFLUX DISEASE
     Route: 065
  2. TOPROL XL [Suspect]
     Indication: ANGINA PECTORIS
     Route: 048
  3. TOPROL XL [Suspect]
     Indication: ANGINA PECTORIS
     Route: 048
  4. TOPROL XL [Suspect]
     Indication: ANGINA PECTORIS
     Route: 048
  5. LISINOPROL [Suspect]
     Indication: STENT PLACEMENT
     Route: 048
     Dates: start: 201304
  6. BRILINTA [Suspect]
     Indication: STENT PLACEMENT
     Route: 048
     Dates: start: 201304
  7. ASPIRIN [Suspect]
     Indication: STENT PLACEMENT
     Route: 065
     Dates: start: 201304
  8. PREVACID [Suspect]
     Indication: GASTROOESOPHAGEAL REFLUX DISEASE
     Route: 065
  9. ATORVASTATIN [Concomitant]
     Indication: BLOOD CHOLESTEROL ABNORMAL
     Route: 048

REACTIONS (11)
  - Angina pectoris [Recovered/Resolved]
  - Back pain [Recovered/Resolved]
  - Heart rate abnormal [Recovered/Resolved]
  - Coronary artery occlusion [Recovered/Resolved]
  - Chest pain [Recovered/Resolved]
  - Abdominal pain upper [Recovered/Resolved]
  - Pain [Recovered/Resolved]
  - Increased tendency to bruise [Not Recovered/Not Resolved]
  - Paraesthesia [Not Recovered/Not Resolved]
  - Throat irritation [Not Recovered/Not Resolved]
  - Eructation [Not Recovered/Not Resolved]
